FAERS Safety Report 9267985 (Version 1)
Quarter: 2013Q2

REPORT INFORMATION
  Report Type: Spontaneous
  Country: US (occurrence: US)
  Receive Date: 20130502
  Receipt Date: 20130502
  Transmission Date: 20140414
  Serious: No
  Sender: FDA-Public Use
  Company Number: US-ALEXION-A201201369

PATIENT
  Age: 19 Day
  Sex: 0

DRUGS (1)
  1. SOLIRIS 300MG [Suspect]
     Route: 064

REACTIONS (2)
  - Blood bilirubin increased [Not Recovered/Not Resolved]
  - Foetal exposure during pregnancy [Recovered/Resolved]
